FAERS Safety Report 8425893-2 (Version None)
Quarter: 2012Q2

REPORT INFORMATION
  Report Type: 
  Country: None (occurrence: None)
  Receive Date: 20120611
  Receipt Date: 20120531
  Transmission Date: 20120825
  Serious: Yes (Other)
  Sender: FDA-Public Use
  Company Number: JP-VERTEX PHARMACEUTICALS INC.-AE-2012-008316

PATIENT
  Age: 49 Year
  Sex: Male

DRUGS (18)
  1. REBETOL [Concomitant]
     Route: 048
     Dates: start: 20120316, end: 20120322
  2. PEG-INTRON [Concomitant]
     Route: 051
     Dates: start: 20120302, end: 20120315
  3. CONFATANIN [Concomitant]
     Route: 048
     Dates: start: 20120216
  4. PEG-INTRON [Concomitant]
     Indication: HEPATITIS C
     Route: 051
     Dates: start: 20120216, end: 20120301
  5. PEG-INTRON [Concomitant]
     Route: 051
     Dates: start: 20120511, end: 20120518
  6. LANIZAC [Concomitant]
  7. REBETOL [Concomitant]
     Route: 048
     Dates: start: 20120412
  8. TELAVIC (TELAPREVIR) [Suspect]
     Route: 048
     Dates: start: 20120323, end: 20120330
  9. PEG-INTRON [Concomitant]
     Route: 051
     Dates: start: 20120316, end: 20120329
  10. REBETOL [Concomitant]
     Indication: HEPATITIS C
     Route: 048
     Dates: start: 20120216, end: 20120315
  11. PEG-INTRON [Concomitant]
     Route: 051
     Dates: start: 20120413, end: 20120413
  12. TELAVIC (TELAPREVIR) [Suspect]
     Indication: HEPATITIS C
     Route: 048
     Dates: start: 20120216, end: 20120322
  13. REBETOL [Concomitant]
     Route: 048
     Dates: start: 20120323, end: 20120330
  14. PEG-INTRON [Concomitant]
     Route: 051
     Dates: start: 20120330
  15. PEG-INTRON [Concomitant]
     Dates: start: 20120420, end: 20120504
  16. TELAVIC (TELAPREVIR) [Suspect]
     Route: 048
     Dates: start: 20120406, end: 20120510
  17. REBETOL [Concomitant]
     Route: 048
     Dates: start: 20120406, end: 20120511
  18. PEG-INTRON [Concomitant]
     Route: 051
     Dates: start: 20120330, end: 20120406

REACTIONS (4)
  - HAEMOGLOBIN DECREASED [None]
  - GOUT [None]
  - PLATELET COUNT DECREASED [None]
  - HYPERURICAEMIA [None]
